FAERS Safety Report 10610388 (Version 1)
Quarter: 2014Q4

REPORT INFORMATION
  Report Type: Spontaneous
  Country: US (occurrence: US)
  Receive Date: 20141126
  Receipt Date: 20141126
  Transmission Date: 20150529
  Serious: No
  Sender: FDA-Public Use
  Company Number: US-009507513-1411USA010345

PATIENT
  Sex: Female

DRUGS (1)
  1. KEYTRUDA [Suspect]
     Active Substance: PEMBROLIZUMAB
     Indication: MALIGNANT MELANOMA
     Dosage: 2 MG/KG, OVER 30 MINUTES INTRAVENOUS INFUSION
     Route: 042
     Dates: start: 2014, end: 20141017

REACTIONS (4)
  - Myocardial necrosis marker increased [Unknown]
  - Fatigue [Unknown]
  - Blood creatine phosphokinase MB increased [Unknown]
  - Chest pain [Unknown]

NARRATIVE: CASE EVENT DATE: 20141017
